FAERS Safety Report 8460198-5 (Version None)
Quarter: 2012Q2

REPORT INFORMATION
  Report Type: 
  Country: None (occurrence: None)
  Receive Date: 20120622
  Receipt Date: 20120612
  Transmission Date: 20120825
  Serious: Yes (Other)
  Sender: FDA-Public Use
  Company Number: US-ELI_LILLY_AND_COMPANY-US201205000324

PATIENT
  Sex: Female
  Weight: 61.769 kg

DRUGS (5)
  1. FORTEO [Suspect]
     Dosage: UNK
     Dates: start: 20120303
  2. ERGOCALCIFEROL [Concomitant]
     Dosage: 50000 U, OTHER
     Route: 048
  3. FORTEO [Suspect]
     Indication: OSTEOPOROSIS
     Dosage: 20 UG, QD
     Route: 058
     Dates: start: 20110418, end: 20111101
  4. ALENDRONATE SODIUM [Concomitant]
     Dosage: 70 MG, WEEKLY (1/W)
     Route: 048
  5. CALCIUM [Concomitant]
     Dosage: UNK, QD

REACTIONS (1)
  - URINE CALCIUM INCREASED [None]
